FAERS Safety Report 10920016 (Version 3)
Quarter: 2015Q2

REPORT INFORMATION
  Report Type: Spontaneous
  Country: GB (occurrence: GB)
  Receive Date: 20150317
  Receipt Date: 20150429
  Transmission Date: 20150821
  Serious: Yes (Other)
  Sender: FDA-Public Use
  Company Number: GB-ACCORD-029104

PATIENT
  Age: 59 Year
  Sex: Female
  Weight: 80 kg

DRUGS (7)
  1. RAMIPRIL. [Concomitant]
     Active Substance: RAMIPRIL
     Indication: HYPERTENSION
  2. TRAMADOL/TRAMADOL HYDROCHLORIDE [Suspect]
     Active Substance: TRAMADOL HYDROCHLORIDE
     Indication: ANALGESIC THERAPY
     Route: 048
     Dates: start: 2013, end: 20140309
  3. CODEINE [Concomitant]
     Active Substance: CODEINE
  4. CITALOPRAM [Interacting]
     Active Substance: CITALOPRAM HYDROBROMIDE
     Indication: ANXIETY
     Dosage: PATIENT INADVERTENTLY TOOK A HIGH DOSE OF CITALOPRAM
     Route: 048
  5. DILTIAZEM [Concomitant]
     Active Substance: DILTIAZEM
  6. OMEPRAZOLE. [Concomitant]
     Active Substance: OMEPRAZOLE
  7. ACETYLSALICYLIC ACID [Concomitant]
     Active Substance: ASPIRIN

REACTIONS (19)
  - Malaise [Recovered/Resolved]
  - Product packaging confusion [Unknown]
  - Disorientation [Recovered/Resolved]
  - Tongue biting [Unknown]
  - Palpitations [Recovered/Resolved]
  - Drug interaction [Unknown]
  - Unresponsive to stimuli [Recovered/Resolved]
  - Bruxism [Recovered/Resolved]
  - Accidental overdose [Unknown]
  - Hyperhidrosis [Recovered/Resolved]
  - Tachycardia [Recovered/Resolved]
  - Speech disorder [Recovered/Resolved]
  - Confusional state [Unknown]
  - Dizziness [Recovered/Resolved]
  - Pallor [Recovered/Resolved]
  - Feeling hot [Recovered/Resolved]
  - Loss of consciousness [Recovered/Resolved]
  - Muscle rigidity [Recovered/Resolved]
  - Skin discolouration [Recovered/Resolved]

NARRATIVE: CASE EVENT DATE: 20140308
